FAERS Safety Report 8791353 (Version 1)
Quarter: 2012Q4

REPORT INFORMATION
  Report Type: Spontaneous
  Country: US (occurrence: None)
  Receive Date: 20120912
  Receipt Date: 20120912
  Transmission Date: 20130627
  Serious: Yes (Hospitalization)
  Sender: FDA-Public Use
  Company Number: 2012AP002891

PATIENT
  Age: 78 Year
  Sex: Female

DRUGS (5)
  1. MIRTAZAPINE TABLETS [Suspect]
     Indication: PRODUCT USED FOR UNKNOWN INDICATION
  2. BACTRIM [Suspect]
     Indication: PRODUCT USED FOR UNKNOWN INDICATION
  3. DEMECLOCYCLINE [Suspect]
     Indication: ADH INAPPROPRIATE
  4. METHOTREXATE [Suspect]
     Indication: PRODUCT USED FOR UNKNOWN INDICATION
  5. NAMENDA [Suspect]
     Indication: PRODUCT USED FOR UNKNOWN INDICATION

REACTIONS (12)
  - Hyponatraemia [None]
  - Inappropriate antidiuretic hormone secretion [None]
  - Hypernatraemia [None]
  - Hyperkalaemia [None]
  - Dizziness [None]
  - Fall [None]
  - Nausea [None]
  - Diarrhoea [None]
  - Mental status changes [None]
  - Convulsion [None]
  - Thirst [None]
  - Asthenia [None]
